FAERS Safety Report 19573709 (Version 1)
Quarter: 2021Q3

REPORT INFORMATION
  Report Type: Report from Study
  Country: DE (occurrence: DE)
  Receive Date: 20210717
  Receipt Date: 20210717
  Transmission Date: 20211014
  Serious: Yes (Hospitalization, Other)
  Sender: FDA-Public Use
  Company Number: DE-TAKEDA-2021TUS041535

PATIENT
  Age: 64 Year
  Sex: Male

DRUGS (16)
  1. TEDUGLUTIDE [Suspect]
     Active Substance: TEDUGLUTIDE
     Dosage: 1.8 MILLIGRAM (0.03 MG/KG), 7 DOSES PER WEEK
     Route: 065
     Dates: start: 20190228, end: 201908
  2. VITAMIN B12 [Concomitant]
     Active Substance: CYANOCOBALAMIN
     Indication: VITAMIN B12 DEFICIENCY
     Dosage: 1000 MILLIGRAM, QD
     Route: 048
     Dates: start: 20200605
  3. TEDUGLUTIDE [Suspect]
     Active Substance: TEDUGLUTIDE
     Dosage: 1.8 MILLIGRAM (0.03 MG/KG), 7 DOSES PER WEEK
     Route: 065
     Dates: start: 20190228, end: 201908
  4. TEDUGLUTIDE [Suspect]
     Active Substance: TEDUGLUTIDE
     Indication: SHORT-BOWEL SYNDROME
     Dosage: 4 MILLIGRAM (0.05 MG/KG), 7 DOSES PER WEEK
     Route: 065
     Dates: start: 20180131, end: 20180718
  5. FOLIC ACID. [Concomitant]
     Active Substance: FOLIC ACID
     Indication: NEPHROGENIC ANAEMIA
     Dosage: 5 MILLIGRAM, QD
     Route: 048
     Dates: start: 20200605
  6. TEDUGLUTIDE [Suspect]
     Active Substance: TEDUGLUTIDE
     Dosage: 1.8 MILLIGRAM (0.03 MG/KG), 7 DOSES PER WEEK
     Route: 065
     Dates: start: 20190228, end: 201908
  7. TEDUGLUTIDE [Suspect]
     Active Substance: TEDUGLUTIDE
     Indication: SHORT-BOWEL SYNDROME
     Dosage: 4 MILLIGRAM (0.05 MG/KG), 7 DOSES PER WEEK
     Route: 065
     Dates: start: 20180131, end: 20180718
  8. TEDUGLUTIDE [Suspect]
     Active Substance: TEDUGLUTIDE
     Indication: SHORT-BOWEL SYNDROME
     Dosage: 4 MILLIGRAM (0.05 MG/KG), 7 DOSES PER WEEK
     Route: 065
     Dates: start: 20180131, end: 20180718
  9. TEDUGLUTIDE [Suspect]
     Active Substance: TEDUGLUTIDE
     Dosage: 1.8 MILLIGRAM (0.03 MG/KG), 7 DOSES PER WEEK
     Route: 065
     Dates: start: 20190228, end: 201908
  10. ERYTHROPOETIN [Concomitant]
     Active Substance: ERYTHROPOIETIN
     Indication: NEPHROGENIC ANAEMIA
     Dosage: UNK UNK, 1/WEEK
     Route: 058
     Dates: start: 20200605
  11. TEDUGLUTIDE [Suspect]
     Active Substance: TEDUGLUTIDE
     Dosage: 2 MILLIGRAM (0.03 MG/KG), 7 DOSES PER WEEK
     Route: 065
     Dates: start: 20180718, end: 201809
  12. TEDUGLUTIDE [Suspect]
     Active Substance: TEDUGLUTIDE
     Dosage: 2 MILLIGRAM (0.03 MG/KG), 7 DOSES PER WEEK
     Route: 065
     Dates: start: 20180718, end: 201809
  13. FERRO SANOL [Concomitant]
     Active Substance: FERROUS GLYCINE SULFATE
     Indication: NEPHROGENIC ANAEMIA
     Dosage: 100 MILLIGRAM, QD
     Route: 048
     Dates: start: 20200605
  14. TEDUGLUTIDE [Suspect]
     Active Substance: TEDUGLUTIDE
     Indication: SHORT-BOWEL SYNDROME
     Dosage: 4 MILLIGRAM (0.05 MG/KG), 7 DOSES PER WEEK
     Route: 065
     Dates: start: 20180131, end: 20180718
  15. TEDUGLUTIDE [Suspect]
     Active Substance: TEDUGLUTIDE
     Dosage: 2 MILLIGRAM (0.03 MG/KG), 7 DOSES PER WEEK
     Route: 065
     Dates: start: 20180718, end: 201809
  16. TEDUGLUTIDE [Suspect]
     Active Substance: TEDUGLUTIDE
     Dosage: 2 MILLIGRAM (0.03 MG/KG), 7 DOSES PER WEEK
     Route: 065
     Dates: start: 20180718, end: 201809

REACTIONS (3)
  - Gastrooesophageal reflux disease [Not Recovered/Not Resolved]
  - Gastritis [Recovered/Resolved]
  - Acute kidney injury [Recovered/Resolved]

NARRATIVE: CASE EVENT DATE: 20210125
